FAERS Safety Report 15317932 (Version 1)
Quarter: 2018Q3

REPORT INFORMATION
  Report Type: Spontaneous
  Country: US (occurrence: US)
  Receive Date: 20180817
  Receipt Date: 20180817
  Transmission Date: 20181010
  Serious: Yes (Life-Threatening, Other)
  Sender: FDA-Public Use
  Company Number: None

PATIENT
  Age: 49 Year
  Weight: 74.25 kg

DRUGS (2)
  1. LEVOTHYROXINE. [Suspect]
     Active Substance: LEVOTHYROXINE
     Indication: HYPOTHYROIDISM
     Dosage: ?          OTHER STRENGTH:MCG;QUANTITY:1 TABLET(S);?
     Route: 048
     Dates: start: 20180316, end: 20180320
  2. SYNTHROID [Suspect]
     Active Substance: LEVOTHYROXINE SODIUM
     Indication: HYPOTHYROIDISM
     Dosage: ?          OTHER STRENGTH:MCG;QUANTITY:1 TABLET(S);?
     Route: 048
     Dates: start: 20180810, end: 20180813

REACTIONS (10)
  - Flushing [None]
  - Product substitution issue [None]
  - Product quality issue [None]
  - Insomnia [None]
  - Heart rate increased [None]
  - Night sweats [None]
  - Chills [None]
  - Headache [None]
  - Blood pressure increased [None]
  - Body temperature fluctuation [None]

NARRATIVE: CASE EVENT DATE: 20180810
